FAERS Safety Report 20181357 (Version 1)
Quarter: 2021Q4

REPORT INFORMATION
  Report Type: Spontaneous
  Country: US (occurrence: None)
  Receive Date: 20211213
  Receipt Date: 20211213
  Transmission Date: 20220303
  Serious: Yes (Disabling)
  Sender: FDA-Public Use
  Company Number: None

PATIENT
  Age: 64 Year
  Sex: Female
  Weight: 48.15 kg

DRUGS (5)
  1. SALONPAS PAIN RELIEVING PATCH HOT [Suspect]
     Active Substance: CAPSICUM OLEORESIN
     Indication: Musculoskeletal stiffness
     Dosage: OTHER QUANTITY : 1 PATCH(ES);?FREQUENCY : AS NEEDED;?
     Route: 061
  2. SALONPAS PAIN RELIEVING PATCH HOT [Suspect]
     Active Substance: CAPSICUM OLEORESIN
     Indication: Arthralgia
  3. GABAPENTIN [Concomitant]
     Active Substance: GABAPENTIN
  4. VITAMIN D [Concomitant]
     Active Substance: VITAMIN D NOS
  5. IRON [Concomitant]
     Active Substance: IRON

REACTIONS (2)
  - Neuropathy peripheral [None]
  - Application site discomfort [None]

NARRATIVE: CASE EVENT DATE: 20211120
